FAERS Safety Report 24888655 (Version 1)
Quarter: 2025Q1

REPORT INFORMATION
  Report Type: Spontaneous
  Country: BR (occurrence: BR)
  Receive Date: 20250127
  Receipt Date: 20250127
  Transmission Date: 20250408
  Serious: Yes (Other)
  Sender: BAYER HEALTHCARE PHARMACEUTICALS INC.
  Company Number: BR-BAYER-2025A008232

PATIENT
  Age: 42 Year
  Sex: Female

DRUGS (1)
  1. MIRENA [Suspect]
     Active Substance: LEVONORGESTREL
     Indication: Contraception
     Dosage: 20?G/DAY
     Route: 015
     Dates: start: 20161027

REACTIONS (9)
  - Blood prolactin [Unknown]
  - Blood insulin increased [None]
  - Acne [Unknown]
  - Fat redistribution [Unknown]
  - Abnormal weight gain [None]
  - Oligomenorrhoea [None]
  - Uterine tenderness [None]
  - Ovarian cyst [None]
  - Device use issue [None]

NARRATIVE: CASE EVENT DATE: 20161101
